FAERS Safety Report 12641933 (Version 2)
Quarter: 2016Q3

REPORT INFORMATION
  Report Type: Spontaneous
  Country: IT (occurrence: IT)
  Receive Date: 20160810
  Receipt Date: 20160830
  Transmission Date: 20161109
  Serious: Yes (Other)
  Sender: FDA-Public Use
  Company Number: IT-TEVA-683287ISR

PATIENT
  Age: 61 Year
  Sex: Male

DRUGS (5)
  1. CEFTRIAXONE. [Suspect]
     Active Substance: CEFTRIAXONE
     Indication: EYE INFECTION SYPHILITIC
  2. INSULIN [Concomitant]
     Active Substance: INSULIN NOS
     Indication: TYPE 1 DIABETES MELLITUS
  3. BENZATHINE PENICILLIN [Concomitant]
     Indication: EYE INFECTION SYPHILITIC
     Dosage: 2.4 MU
     Route: 030
  4. DOXYCYCLINE. [Suspect]
     Active Substance: DOXYCYCLINE
     Indication: EYE INFECTION SYPHILITIC
  5. INSULIN [Concomitant]
     Active Substance: INSULIN NOS
     Indication: TYPE 1 DIABETES MELLITUS
     Dosage: 96 IU BASAL BOLUS REGIMEN

REACTIONS (1)
  - Jarisch-Herxheimer reaction [Unknown]
